FAERS Safety Report 6596395-3 (Version None)
Quarter: 2010Q1

REPORT INFORMATION
  Report Type: 
  Country: None (occurrence: None)
  Receive Date: 20100223
  Receipt Date: 20100215
  Transmission Date: 20100710
  Serious: Yes (Hospitalization)
  Sender: FDA-Public Use
  Company Number: US-AMGEN-QUU366670

PATIENT

DRUGS (3)
  1. ENBREL [Suspect]
     Indication: RHEUMATOID ARTHRITIS
     Route: 064
     Dates: start: 20060530, end: 20070701
  2. PREDNISONE [Concomitant]
     Route: 064
  3. UNSPECIFIED MEDICATION [Concomitant]

REACTIONS (1)
  - PREMATURE BABY [None]
